FAERS Safety Report 8050444-4 (Version None)
Quarter: 2012Q1

REPORT INFORMATION
  Report Type: 
  Country: None (occurrence: None)
  Receive Date: 20120111
  Receipt Date: 20110207
  Transmission Date: 20120608
  Serious: Yes (Other)
  Sender: FDA-Public Use
  Company Number: 2010-07082

PATIENT
  Age: 18 Year
  Sex: Male

DRUGS (2)
  1. TUBERSOL 5 TU (TUBERCULIN PPD (M) 5 TU) , SANOFI PASTEUR LTD., C3584A [Suspect]
     Indication: TUBERCULIN TEST
     Dosage: I.D.,FOREARM L
     Dates: start: 20101219, end: 20101219
  2. DOXYCYCLINE [Concomitant]

REACTIONS (2)
  - DYSKINESIA [None]
  - PRESYNCOPE [None]
